FAERS Safety Report 13555494 (Version 3)
Quarter: 2017Q2

REPORT INFORMATION
  Report Type: Report from Study
  Country: US (occurrence: US)
  Receive Date: 20170517
  Receipt Date: 20170607
  Transmission Date: 20170830
  Serious: Yes (Death, Hospitalization, Other)
  Sender: FDA-Public Use
  Company Number: US-ROCHE-1930824

PATIENT
  Age: 65 Year
  Sex: Female
  Weight: 64 kg

DRUGS (30)
  1. VANCOMYCIN [Concomitant]
     Active Substance: VANCOMYCIN
     Indication: PROPHYLAXIS
     Route: 042
     Dates: start: 20170427
  2. ZINC SULFATE [Concomitant]
     Active Substance: ZINC SULFATE\ZINC SULFATE ANHYDROUS
     Route: 048
     Dates: start: 20170427
  3. COBIMETINIB [Suspect]
     Active Substance: COBIMETINIB
     Dosage: MOST RECENT DOSE (20 MG) ON 12/MAY/2017 PRIOR TO HEPATIC FAILURE
     Route: 048
     Dates: start: 20170505
  4. ACYCLOVIR. [Concomitant]
     Active Substance: ACYCLOVIR
     Indication: INFECTION PROPHYLAXIS
     Route: 048
  5. OMEPRAZOLE. [Concomitant]
     Active Substance: OMEPRAZOLE
     Indication: GASTROOESOPHAGEAL REFLUX DISEASE
     Route: 048
  6. ERGOCALCIFEROL. [Concomitant]
     Active Substance: ERGOCALCIFEROL
     Indication: PROPHYLAXIS
     Dosage: 50000 U
     Route: 048
     Dates: start: 20170424
  7. FLUOXETINE [Concomitant]
     Active Substance: FLUOXETINE HYDROCHLORIDE
     Indication: DEPRESSION
     Route: 048
  8. CIPROFLOXACIN. [Suspect]
     Active Substance: CIPROFLOXACIN
     Indication: LUNG INFECTION
     Route: 048
     Dates: start: 20170505
  9. ACETAMINOPHEN. [Concomitant]
     Active Substance: ACETAMINOPHEN
     Indication: BACK PAIN
     Route: 048
  10. ACETAMINOPHEN. [Concomitant]
     Active Substance: ACETAMINOPHEN
     Indication: PROPHYLAXIS
  11. FLUTICASONE PROPIONATE. [Concomitant]
     Active Substance: FLUTICASONE PROPIONATE
     Indication: SEASONAL ALLERGY
     Route: 045
     Dates: start: 20170421
  12. FOLIC ACID. [Concomitant]
     Active Substance: FOLIC ACID
     Indication: ANAEMIA
     Route: 048
     Dates: start: 20170420
  13. MAGNESIUM OXIDE. [Concomitant]
     Active Substance: MAGNESIUM OXIDE
     Indication: HYPOMAGNESAEMIA
     Route: 048
     Dates: start: 20170423, end: 20170429
  14. ONDANSETRON [Concomitant]
     Active Substance: ONDANSETRON
     Indication: VOMITING
     Route: 042
     Dates: start: 20170420
  15. OXYCODONE [Concomitant]
     Active Substance: OXYCODONE
     Indication: BACK PAIN
     Route: 048
     Dates: start: 20170501, end: 20170501
  16. CHLORHEXIDINE [Concomitant]
     Active Substance: CHLORHEXIDINE
     Indication: PROPHYLAXIS
     Route: 048
     Dates: start: 20170424
  17. LINEZOLID. [Suspect]
     Active Substance: LINEZOLID
     Indication: LUNG INFECTION
     Route: 042
     Dates: start: 20170503
  18. ACETAMINOPHEN. [Concomitant]
     Active Substance: ACETAMINOPHEN
     Indication: PREMEDICATION
  19. POTASSIUM CHLORIDE. [Concomitant]
     Active Substance: POTASSIUM CHLORIDE
     Indication: HYPOKALAEMIA
     Dosage: 20 OTHER
     Route: 042
     Dates: start: 20170427, end: 20170501
  20. VENETOCLAX [Suspect]
     Active Substance: VENETOCLAX
     Indication: ACUTE MYELOID LEUKAEMIA
     Dosage: MOST RECENT DOSE OF 800 MG VENETOCLAX PRIOR TO WORSENING OF DIARRHEA ONSET 01/MAY/2017?MOST RECENT D
     Route: 048
     Dates: start: 20170427
  21. METRONIDAZOLE. [Suspect]
     Active Substance: METRONIDAZOLE
     Indication: LUNG INFECTION
     Route: 065
  22. ERTAPENEM [Concomitant]
     Active Substance: ERTAPENEM
     Indication: PROPHYLAXIS
     Route: 042
     Dates: start: 20170429, end: 20170429
  23. MAGNESIUM SULFATE. [Concomitant]
     Active Substance: MAGNESIUM SULFATE
     Indication: HYPOMAGNESAEMIA
     Route: 048
     Dates: start: 20170423, end: 20170430
  24. LINEZOLID. [Suspect]
     Active Substance: LINEZOLID
     Route: 048
     Dates: start: 20170504, end: 20170506
  25. ALLOPURINOL. [Concomitant]
     Active Substance: ALLOPURINOL
     Indication: PROPHYLAXIS
     Route: 048
     Dates: start: 20170420
  26. IMODIUM [Concomitant]
     Active Substance: LOPERAMIDE HYDROCHLORIDE
     Indication: DIARRHOEA
     Route: 048
     Dates: start: 20170427
  27. DOCUSATE SODIUM. [Concomitant]
     Active Substance: DOCUSATE SODIUM
     Indication: CONSTIPATION
     Route: 048
     Dates: start: 20170424, end: 20170429
  28. COBIMETINIB [Suspect]
     Active Substance: COBIMETINIB
     Indication: ACUTE MYELOID LEUKAEMIA
     Dosage: MOST RECENT DOSE OF 40 MG COBIMETINIB PRIOR TO WORSENING OF DIARRHEA ONSET 01/MAY/2017?MOST RECENT D
     Route: 048
     Dates: start: 20170427, end: 20170504
  29. FUROSEMIDE. [Concomitant]
     Active Substance: FUROSEMIDE
     Indication: PREMEDICATION
     Route: 042
     Dates: start: 20170428, end: 20170429
  30. ONDANSETRON [Concomitant]
     Active Substance: ONDANSETRON
     Indication: NAUSEA
     Route: 042
     Dates: start: 20170427, end: 20170427

REACTIONS (3)
  - Pneumonia necrotising [Fatal]
  - Diarrhoea [Recovered/Resolved]
  - Lung infection [Not Recovered/Not Resolved]

NARRATIVE: CASE EVENT DATE: 20170501
